FAERS Safety Report 21126227 (Version 1)
Quarter: 2022Q3

REPORT INFORMATION
  Report Type: Spontaneous
  Country: US (occurrence: None)
  Receive Date: 20220721
  Receipt Date: 20220721
  Transmission Date: 20221027
  Serious: No
  Sender: FDA-Public Use
  Company Number: None

PATIENT
  Age: 24 Year
  Sex: Male
  Weight: 90 kg

DRUGS (3)
  1. VOSILASARM [Suspect]
     Active Substance: VOSILASARM
     Indication: Product used for unknown indication
  2. TRESTOLONE [Suspect]
     Active Substance: TRESTOLONE
     Indication: Product used for unknown indication
  3. TADALAFIL [Suspect]
     Active Substance: TADALAFIL
     Indication: Erectile dysfunction

REACTIONS (3)
  - Hypertension [None]
  - Headache [None]
  - Product use in unapproved indication [None]
